FAERS Safety Report 15386778 (Version 1)
Quarter: 2018Q4

REPORT INFORMATION
  Report Type: Spontaneous
  Country: FR (occurrence: FR)
  Receive Date: 20180914
  Receipt Date: 20180914
  Transmission Date: 20190204
  Serious: Yes (Death, Hospitalization, Other)
  Sender: FDA-Public Use
  Company Number: FR-009507513-1809FRA002316

PATIENT
  Age: 78 Year
  Sex: Female

DRUGS (18)
  1. CORDARONE [Concomitant]
     Active Substance: AMIODARONE HYDROCHLORIDE
  2. SONDALIS [Concomitant]
     Active Substance: UNSPECIFIED INGREDIENT
  3. TYGACIL [Concomitant]
     Active Substance: TIGECYCLINE
  4. ATARAX [Concomitant]
     Active Substance: HYDROXYZINE HYDROCHLORIDE
  5. CALCIPARINE [Concomitant]
     Active Substance: HEPARIN CALCIUM
  6. TAZOCILLINE [Suspect]
     Active Substance: PIPERACILLIN SODIUM\TAZOBACTAM SODIUM
     Indication: PRODUCT USED FOR UNKNOWN INDICATION
  7. VANCOMYCIN [Concomitant]
     Active Substance: VANCOMYCIN
  8. PERFALGAN [Suspect]
     Active Substance: ACETAMINOPHEN
     Dosage: UNK
     Route: 042
     Dates: start: 20120125, end: 20120130
  9. SMOFKABIVEN CENTRAL ELECTROLYT FREE [Suspect]
     Active Substance: AMINO ACIDS\DEXTROSE\SOYBEAN OIL
     Dosage: UNK
     Route: 041
     Dates: start: 20120130
  10. SMOFKABIVEN [Suspect]
     Active Substance: AMINO ACIDS\DEXTROSE\ELECTROLYTES NOS\SOYBEAN OIL
     Dates: start: 20120124, end: 20120130
  11. LASILIX [Concomitant]
     Active Substance: FUROSEMIDE
  12. INEXIUM (ESOMEPRAZOLE MAGNESIUM) [Concomitant]
     Active Substance: ESOMEPRAZOLE MAGNESIUM
  13. ACTRAPID [Concomitant]
     Active Substance: INSULIN HUMAN
  14. CANCIDAS [Suspect]
     Active Substance: CASPOFUNGIN ACETATE
     Indication: PRODUCT USED FOR UNKNOWN INDICATION
     Dosage: UNK
     Route: 042
     Dates: start: 20120122, end: 20120130
  15. PERFALGAN [Suspect]
     Active Substance: ACETAMINOPHEN
     Indication: PRODUCT USED FOR UNKNOWN INDICATION
     Dosage: UNK
     Route: 042
     Dates: start: 20120113, end: 20120120
  16. SMOFKABIVEN CENTRAL ELECTROLYT FREE [Suspect]
     Active Substance: AMINO ACIDS\DEXTROSE\SOYBEAN OIL
     Indication: PRODUCT USED FOR UNKNOWN INDICATION
     Dosage: UNK
     Route: 041
     Dates: start: 20120116, end: 20120120
  17. ACUPAN [Concomitant]
     Active Substance: NEFOPAM HYDROCHLORIDE
  18. AMIKLIN [Concomitant]
     Active Substance: AMIKACIN SULFATE

REACTIONS (3)
  - Thrombocytopenia [Unknown]
  - Leukopenia [Recovered/Resolved]
  - Septic shock [Fatal]

NARRATIVE: CASE EVENT DATE: 20120124
